FAERS Safety Report 11203964 (Version 1)
Quarter: 2015Q2

REPORT INFORMATION
  Report Type: Spontaneous
  Country: FR (occurrence: FR)
  Receive Date: 20150619
  Receipt Date: 20150619
  Transmission Date: 20150821
  Serious: Yes (Hospitalization, Disabling)
  Sender: FDA-Public Use
  Company Number: PHHY2015FR071762

PATIENT
  Age: 70 Year
  Sex: Male

DRUGS (1)
  1. NILOTINIB [Suspect]
     Active Substance: NILOTINIB
     Indication: CHRONIC MYELOID LEUKAEMIA
     Dosage: 150 OT, BID
     Route: 048

REACTIONS (4)
  - Cardiac valve disease [Unknown]
  - Pain in extremity [Unknown]
  - Coronary artery disease [Unknown]
  - Thrombosis [Unknown]

NARRATIVE: CASE EVENT DATE: 2013
